FAERS Safety Report 8473482-6 (Version None)
Quarter: 2012Q2

REPORT INFORMATION
  Report Type: 
  Country: None (occurrence: None)
  Receive Date: 20120625
  Receipt Date: 20120625
  Transmission Date: 20120825
  Serious: No
  Sender: FDA-Public Use
  Company Number: None

PATIENT
  Sex: Female

DRUGS (2)
  1. ZOLOFT [Suspect]
     Indication: BIPOLAR DISORDER
     Dosage: 100MG ONCE A DAY PO
     Route: 048
  2. ABILIFY [Suspect]
     Indication: BIPOLAR DISORDER
     Dosage: 10MG ONCE A DAY PO
     Route: 048

REACTIONS (7)
  - ECZEMA [None]
  - OVARIAN CYST [None]
  - UTERINE NEOPLASM [None]
  - NAUSEA [None]
  - HAEMORRHAGE [None]
  - VOMITING [None]
  - WEIGHT INCREASED [None]
